FAERS Safety Report 8173547-2 (Version None)
Quarter: 2012Q1

REPORT INFORMATION
  Report Type: 
  Country: None (occurrence: None)
  Receive Date: 20120229
  Receipt Date: 20120221
  Transmission Date: 20120608
  Serious: Yes (Hospitalization)
  Sender: FDA-Public Use
  Company Number: US-AMGEN-USACT2012002638

PATIENT
  Age: 29 Year
  Sex: Female
  Weight: 75.7 kg

DRUGS (20)
  1. MIRALAX [Concomitant]
     Dosage: UNK UNK, PRN
     Route: 048
  2. AMBIEN [Concomitant]
     Dosage: 10 MG, PRN
     Route: 048
  3. EFFEXOR [Concomitant]
     Dosage: 37.5 MG, QD
     Route: 048
  4. NAPROXEN (ALEVE) [Concomitant]
  5. BLINDED PLACEBO [Suspect]
     Indication: BREAST CANCER
     Dates: start: 20110801
  6. NEULASTA [Suspect]
  7. TAXOTERE [Concomitant]
     Dosage: UNK
     Dates: start: 20110725
  8. LORTAB [Concomitant]
     Dosage: 5 MG, QID
     Route: 048
  9. MULTI-VITAMINS [Concomitant]
     Dosage: UNK
     Route: 048
  10. COUMADIN [Concomitant]
     Dosage: 1 MG, QD
     Route: 048
  11. CALCIUM [Concomitant]
  12. FOLIC ACID [Concomitant]
     Dosage: UNK UNK, QD
     Route: 048
  13. COMPAZINE [Concomitant]
     Dosage: 10 MG, PRN
     Route: 048
  14. XANAX [Concomitant]
     Dosage: 1 MG, QD
     Route: 048
  15. SENOKOT [Concomitant]
     Dosage: UNK UNK, QD
     Route: 048
  16. ZOFRAN [Concomitant]
     Dosage: UNK UNK, PRN
     Route: 048
  17. MORPHINE SULFATE [Concomitant]
     Indication: FLANK PAIN
     Dosage: UNK UNK, PRN
     Route: 048
  18. VITAMIN B COMPLEX CAP [Concomitant]
     Dosage: UNK
     Route: 048
  19. CELEXA [Concomitant]
  20. BLINDED DENOSUMAB [Suspect]
     Indication: BREAST CANCER
     Dates: start: 20110801

REACTIONS (13)
  - FLANK PAIN [None]
  - HAEMOGLOBIN DECREASED [None]
  - RED BLOOD CELL COUNT DECREASED [None]
  - HEART RATE INCREASED [None]
  - ASPARTATE AMINOTRANSFERASE INCREASED [None]
  - WHITE BLOOD CELL COUNT INCREASED [None]
  - PYREXIA [None]
  - URINARY RETENTION [None]
  - NEPHROLITHIASIS [None]
  - BLOOD ALBUMIN DECREASED [None]
  - BLOOD SODIUM DECREASED [None]
  - ALANINE AMINOTRANSFERASE INCREASED [None]
  - HAEMATOCRIT DECREASED [None]
